FAERS Safety Report 14523419 (Version 3)
Quarter: 2018Q1

REPORT INFORMATION
  Report Type: Spontaneous
  Country: US (occurrence: US)
  Receive Date: 20180212
  Receipt Date: 20180222
  Transmission Date: 20180509
  Serious: No
  Sender: FDA-Public Use
  Company Number: US-AMGEN-USASP2018018238

PATIENT
  Age: 69 Year
  Sex: Female

DRUGS (5)
  1. ENBREL [Suspect]
     Active Substance: ETANERCEPT
     Indication: RHEUMATOID ARTHRITIS
     Dosage: 50 MG, QWK
     Route: 065
     Dates: start: 201712
  2. MTX [Concomitant]
     Active Substance: METHOTREXATE SODIUM
     Dosage: 12.5 MG, QWK
  3. ENBREL [Suspect]
     Active Substance: ETANERCEPT
     Indication: ANKYLOSING SPONDYLITIS
  4. LEUCOVORIN. [Concomitant]
     Active Substance: LEUCOVORIN
     Dosage: UNK UNK, QD
  5. BUMEX [Concomitant]
     Active Substance: BUMETANIDE
     Dosage: UNK

REACTIONS (12)
  - Eye disorder [Unknown]
  - Dyspnoea [Unknown]
  - Pain in jaw [Unknown]
  - Arthralgia [Unknown]
  - Injection site rash [Unknown]
  - Vision blurred [Not Recovered/Not Resolved]
  - Injection site mass [Unknown]
  - Neck pain [Not Recovered/Not Resolved]
  - Migraine [Not Recovered/Not Resolved]
  - Dizziness [Not Recovered/Not Resolved]
  - Pain in extremity [Unknown]
  - Depression [Not Recovered/Not Resolved]

NARRATIVE: CASE EVENT DATE: 2018
